FAERS Safety Report 4449885-3 (Version None)
Quarter: 2004Q3

REPORT INFORMATION
  Report Type: 
  Country: None (occurrence: None)
  Receive Date: 20040915
  Receipt Date: 20040909
  Transmission Date: 20050211
  Serious: Yes (Life-Threatening)
  Sender: FDA-Public Use
  Company Number: US-MERCK-0409USA00729

PATIENT
  Age: 83 Year
  Sex: Female

DRUGS (5)
  1. ALBUTEROL [Concomitant]
     Route: 065
  2. FOSAMAX [Suspect]
     Indication: OSTEOPOROSIS
     Route: 048
  3. FLOVENT [Concomitant]
     Route: 065
  4. SINGULAIR [Concomitant]
     Route: 048
  5. PREDNISONE [Concomitant]
     Route: 065

REACTIONS (2)
  - BLOOD PRESSURE INCREASED [None]
  - LOSS OF CONSCIOUSNESS [None]
